FAERS Safety Report 6909271-0 (Version None)
Quarter: 2010Q3

REPORT INFORMATION
  Report Type: 
  Country: None (occurrence: None)
  Receive Date: 20100805
  Receipt Date: 20100722
  Transmission Date: 20110219
  Serious: Yes (Other)
  Sender: FDA-Public Use
  Company Number: PHHY2010NL50432

PATIENT
  Age: 72 Year
  Sex: Female

DRUGS (10)
  1. PAMIDRONATE DISODIUM [Suspect]
     Dosage: 150 MG /DAY
     Route: 048
  2. RISEDRONATE SODIUM [Concomitant]
     Dosage: 35 MG /WEEK
  3. CALCIUM [Concomitant]
  4. GLUCOCORTICOIDS [Concomitant]
  5. ESOMEPRAZOLE MAGNESIUM [Concomitant]
  6. SIMVASTATIN [Concomitant]
  7. CAPTOPRIL [Concomitant]
  8. IRBESARTAN [Concomitant]
  9. CLOPIDOGREL [Concomitant]
  10. VITAMIN D [Concomitant]

REACTIONS (4)
  - ARTHRALGIA [None]
  - FEMUR FRACTURE [None]
  - PAIN IN EXTREMITY [None]
  - PATHOLOGICAL FRACTURE [None]
